FAERS Safety Report 5872957-3 (Version None)
Quarter: 2008Q3

REPORT INFORMATION
  Report Type: 
  Country: None (occurrence: None)
  Receive Date: 20080905
  Receipt Date: 20080825
  Transmission Date: 20090109
  Serious: Yes (Other)
  Sender: FDA-Public Use
  Company Number: US-PFIZER INC-2008071682

PATIENT
  Sex: Female
  Weight: 77.272 kg

DRUGS (7)
  1. DETROL LA [Suspect]
     Indication: HYPERTONIC BLADDER
  2. DEPO-PROVERA SUSPENSION/INJ [Suspect]
  3. ERYTHROMYCIN [Suspect]
  4. AVONEX [Concomitant]
  5. IBUPROFEN [Concomitant]
  6. LORATADINE [Concomitant]
  7. MECLIZINE [Concomitant]

REACTIONS (2)
  - HYPERSENSITIVITY [None]
  - WEIGHT INCREASED [None]
